FAERS Safety Report 17625109 (Version 1)
Quarter: 2020Q2

REPORT INFORMATION
  Report Type: Spontaneous
  Country: CA (occurrence: CA)
  Receive Date: 20200403
  Receipt Date: 20200403
  Transmission Date: 20200713
  Serious: Yes (Hospitalization)
  Sender: FDA-Public Use
  Company Number: CA-ASCEND THERAPEUTICS US, LLC-2082306

PATIENT
  Age: 52 Year
  Sex: Female

DRUGS (5)
  1. PRASTERONE (PRASTERONE) UNKNOWN [Suspect]
     Active Substance: PRASTERONE
     Route: 067
  2. LORATADINE. [Suspect]
     Active Substance: LORATADINE
     Route: 048
  3. CRINONE [Suspect]
     Active Substance: PROGESTERONE
  4. ESTROGEL [Suspect]
     Active Substance: ESTRADIOL
     Indication: PRODUCT USED FOR UNKNOWN INDICATION
  5. BUDESONIDE. [Suspect]
     Active Substance: BUDESONIDE

REACTIONS (9)
  - Cellulitis [Unknown]
  - Periorbital oedema [Unknown]
  - Swelling face [Unknown]
  - Butterfly rash [Unknown]
  - Feeling hot [Unknown]
  - Photosensitivity reaction [Unknown]
  - Rash [Unknown]
  - Headache [Unknown]
  - Tinnitus [Unknown]
